FAERS Safety Report 9716936 (Version 1)
Quarter: 2013Q4

REPORT INFORMATION
  Report Type: Spontaneous
  Country: US (occurrence: US)
  Receive Date: 20131127
  Receipt Date: 20131127
  Transmission Date: 20140711
  Serious: No
  Sender: FDA-Public Use
  Company Number: US-GILEAD-2009-0019972

PATIENT
  Sex: Female
  Weight: 72.57 kg

DRUGS (11)
  1. LETAIRIS [Suspect]
     Indication: PULMONARY ARTERIAL HYPERTENSION
     Route: 048
     Dates: start: 20080315
  2. REVATIO [Concomitant]
  3. PLAVIX [Concomitant]
  4. LASIX [Concomitant]
  5. CARVEDILOL [Concomitant]
  6. SPIRIVA [Concomitant]
  7. TRICOR [Concomitant]
  8. NOVOLOG [Concomitant]
  9. LANTUS [Concomitant]
  10. CALCIUM [Concomitant]
  11. PROTONIX [Concomitant]

REACTIONS (1)
  - Nasal congestion [Unknown]
